FAERS Safety Report 18523436 (Version 1)
Quarter: 2020Q4

REPORT INFORMATION
  Report Type: Spontaneous
  Country: US (occurrence: US)
  Receive Date: 20201119
  Receipt Date: 20201119
  Transmission Date: 20210114
  Serious: No
  Sender: FDA-Public Use
  Company Number: US-PFIZER INC-2020455977

PATIENT
  Age: 51 Year
  Sex: Female
  Weight: 58.05 kg

DRUGS (10)
  1. MOBIC [Concomitant]
     Active Substance: MELOXICAM
     Dosage: 15 MG
  2. XANAX [Concomitant]
     Active Substance: ALPRAZOLAM
     Dosage: 0.25 MG
  3. KRILL OIL [Concomitant]
     Active Substance: DIETARY SUPPLEMENT\KRILL OIL
     Dosage: UNK (1000-130 MG )
  4. NEUPOGEN [Concomitant]
     Active Substance: FILGRASTIM
     Dosage: 300 UG (300 MCG /0.5 SYRINGE)
  5. VITAMIN D3 [Concomitant]
     Active Substance: CHOLECALCIFEROL
     Dosage: 10 UG
  6. CALCIUM + D3 [CALCIUM;COLECALCIFEROL] [Concomitant]
     Dosage: UNK (600 MG-500 TABLET ER)
  7. COLLAGEN [Concomitant]
     Active Substance: COLLAGEN
     Dosage: UNK (125-740 MG)
  8. LETROZOLE. [Concomitant]
     Active Substance: LETROZOLE
     Dosage: 2.5 MG
  9. LEXAPRO [Concomitant]
     Active Substance: ESCITALOPRAM OXALATE
     Dosage: 10 MG
  10. IBRANCE [Suspect]
     Active Substance: PALBOCICLIB
     Indication: BREAST CANCER FEMALE
     Dosage: 100 MG, CYCLIC (1 DAILY FOR 21 DAYS)
     Route: 048
     Dates: start: 20200619

REACTIONS (2)
  - Arthralgia [Unknown]
  - Pain [Unknown]
